FAERS Safety Report 7621146-0 (Version None)
Quarter: 2011Q3

REPORT INFORMATION
  Report Type: 
  Country: None (occurrence: None)
  Receive Date: 20110719
  Receipt Date: 20110708
  Transmission Date: 20111222
  Serious: Yes (Other)
  Sender: FDA-Public Use
  Company Number: PHHY2011SG61007

PATIENT

DRUGS (1)
  1. ZOMETA [Suspect]
     Dosage: UNK
     Dates: start: 20110601

REACTIONS (4)
  - PAIN [None]
  - PYREXIA [None]
  - IMPAIRED WORK ABILITY [None]
  - MYALGIA [None]
